FAERS Safety Report 6088459-8 (Version None)
Quarter: 2009Q1

REPORT INFORMATION
  Report Type: 
  Country: None (occurrence: None)
  Receive Date: 20090220
  Receipt Date: 20090220
  Transmission Date: 20090719
  Serious: Yes (Hospitalization)
  Sender: FDA-Public Use
  Company Number: None

PATIENT
  Sex: Female
  Weight: 106 kg

DRUGS (1)
  1. METHADONE HCL [Suspect]
     Dosage: PO
     Route: 048

REACTIONS (4)
  - CHEST PAIN [None]
  - DYSPNOEA [None]
  - MIOSIS [None]
  - OVERDOSE [None]
